FAERS Safety Report 9394223 (Version 2)
Quarter: 2013Q3

REPORT INFORMATION
  Report Type: Report from Study
  Country: US (occurrence: US)
  Receive Date: 20130711
  Receipt Date: 20130730
  Transmission Date: 20140515
  Serious: Yes (Death)
  Sender: FDA-Public Use
  Company Number: US-ROCHE-1247234

PATIENT
  Sex: 0

DRUGS (1)
  1. ALTEPLASE [Suspect]
     Indication: ISCHAEMIC STROKE
     Dosage: DOSE: 0.88 MG/KG (0.81-0.91 MG/KG)
     Route: 065

REACTIONS (1)
  - Death [Fatal]
